FAERS Safety Report 22340755 (Version 1)
Quarter: 2023Q2

REPORT INFORMATION
  Report Type: Report from Study
  Country: US (occurrence: US)
  Receive Date: 20230518
  Receipt Date: 20230518
  Transmission Date: 20230721
  Serious: Yes (Other)
  Sender: FDA-Public Use
  Company Number: US-JAZZ-2022-US-000966

PATIENT
  Sex: Female

DRUGS (35)
  1. XYREM [Suspect]
     Active Substance: SODIUM OXYBATE
     Indication: Sleep disorder
     Dosage: 3.75 MILLIGRAM, BID
  2. XYREM [Suspect]
     Active Substance: SODIUM OXYBATE
     Dosage: 6.5 MILLIGRAM
  3. XYREM [Suspect]
     Active Substance: SODIUM OXYBATE
     Dosage: 6.25 MILLIGRAM
  4. XYREM [Suspect]
     Active Substance: SODIUM OXYBATE
     Dosage: 2.25 MILLIGRAM
  5. XYREM [Suspect]
     Active Substance: SODIUM OXYBATE
     Dosage: 3.75 GRAM FIRST DOSE AND 2.25 SECOND DOSE
  6. ATORVASTATIN [Concomitant]
     Active Substance: ATORVASTATIN
     Indication: Product used for unknown indication
     Dosage: 20 MILLIGRAM
     Dates: start: 20040601
  7. MYCOPHENOLATE AN [Concomitant]
     Indication: Product used for unknown indication
     Dosage: 500 MILLIGRAM
     Dates: start: 20060601
  8. ASPIRIN [Concomitant]
     Active Substance: ASPIRIN
     Indication: Product used for unknown indication
  9. PREDNISONE ACETATE [Concomitant]
     Active Substance: PREDNISONE ACETATE
     Indication: Product used for unknown indication
     Dosage: 5 MILLIGRAM
     Dates: start: 20040601
  10. DIAZEPAM [Concomitant]
     Active Substance: DIAZEPAM
     Indication: Product used for unknown indication
     Dosage: 5 MILLIGRAM
     Dates: start: 20110601
  11. GABAPENTIN [Concomitant]
     Active Substance: GABAPENTIN
     Indication: Product used for unknown indication
     Dosage: 5 MILLIGRAM
     Dates: start: 20160101
  12. NOVOLOG [Concomitant]
     Active Substance: INSULIN ASPART
     Indication: Product used for unknown indication
     Dosage: 100 100 UNIT/ML VIAL
     Dates: start: 19820101
  13. ACYCLOVIR ABBOTT VIAL [Concomitant]
     Indication: Product used for unknown indication
     Dosage: 400 MILLIGRAM
     Dates: start: 20060101
  14. OMEPRAZOLE [Concomitant]
     Active Substance: OMEPRAZOLE
     Indication: Product used for unknown indication
     Dosage: 20 MILLIGRAM
     Dates: start: 20040101
  15. CITALOPRAM HYDROBROMIDE [Concomitant]
     Active Substance: CITALOPRAM HYDROBROMIDE
     Indication: Product used for unknown indication
     Dosage: 20 MILLIGRAM
     Dates: start: 20040101
  16. CINNAMON EX [Concomitant]
     Indication: Product used for unknown indication
     Dosage: 500 MILLIGRAM
     Dates: start: 20140601
  17. KRILL OIL TVS [Concomitant]
     Indication: Product used for unknown indication
     Dosage: 500 MILLIGRAM
     Dates: start: 20110601
  18. GLUCOSAMINE COMPOUND [Concomitant]
     Indication: Product used for unknown indication
     Dosage: 1 DOSAGE FORM
     Dates: start: 20140601
  19. PROBIOTICS NOS [Concomitant]
     Active Substance: PROBIOTICS NOS
     Indication: Product used for unknown indication
     Dosage: 1 DOSAGE FORM
     Dates: start: 20140601
  20. WOMEN^S ESSENTIALS [Concomitant]
     Indication: Product used for unknown indication
     Dosage: 1 DOSAGE FORM
     Dates: start: 20000601
  21. PROLIA [Concomitant]
     Active Substance: DENOSUMAB
     Indication: Product used for unknown indication
     Dosage: 60 MILLIGRAM
     Dates: start: 20140601
  22. SODIUM BICARBONATE [Concomitant]
     Active Substance: SODIUM BICARBONATE
     Indication: Product used for unknown indication
     Dosage: 650 MILLIGRAM
     Dates: start: 20130601
  23. MAGNESIUM OXIDE [Concomitant]
     Active Substance: MAGNESIUM OXIDE
     Indication: Product used for unknown indication
     Dosage: 250 MILLIGRAM
     Dates: start: 20150601
  24. CHOLECALCIFEROL [Concomitant]
     Active Substance: CHOLECALCIFEROL
     Indication: Product used for unknown indication
  25. DIFLUCAN DUO [Concomitant]
     Indication: Product used for unknown indication
     Dosage: 1 DOSAGE FORM
     Dates: start: 20000601
  26. HYDROMORPHONE [Concomitant]
     Active Substance: HYDROMORPHONE
     Indication: Product used for unknown indication
     Dosage: 2 MILLIGRAM
     Dates: start: 20190327
  27. MELATONIN [Concomitant]
     Active Substance: MELATONIN
     Indication: Product used for unknown indication
     Dosage: 3 MILLIGRAM
     Route: 048
  28. METHOCARBAMOL [Concomitant]
     Active Substance: METHOCARBAMOL
     Indication: Product used for unknown indication
     Dosage: 750 MILLIGRAM
     Route: 048
  29. METOPROLOL TARTRATE [Concomitant]
     Active Substance: METOPROLOL TARTRATE
     Indication: Product used for unknown indication
     Dosage: 25 MILLIGRAM
  30. VITAMINS [Concomitant]
     Active Substance: VITAMINS
     Indication: Product used for unknown indication
     Dosage: 1 DOSAGE FORM
  31. PLAVIX [Concomitant]
     Active Substance: CLOPIDOGREL BISULFATE
     Indication: Product used for unknown indication
     Dosage: 75 MILLIGRAM
  32. ASCORBIC ACID [Concomitant]
     Active Substance: ASCORBIC ACID
     Indication: Product used for unknown indication
     Dosage: 500 MILLIGRAM
     Route: 048
  33. VITAMIN D3 [Concomitant]
     Active Substance: CHOLECALCIFEROL
     Indication: Product used for unknown indication
     Dosage: 1 DOSAGE FORM
  34. HUMALOG [Concomitant]
     Active Substance: INSULIN LISPRO
     Indication: Product used for unknown indication
  35. LANTUS [Concomitant]
     Active Substance: INSULIN GLARGINE
     Indication: Product used for unknown indication

REACTIONS (7)
  - Spinal fracture [Unknown]
  - Fracture infection [Unknown]
  - Illness [Unknown]
  - Cerebral disorder [Unknown]
  - Alopecia [Unknown]
  - Hypersensitivity [Unknown]
  - Product administration interrupted [Unknown]
